FAERS Safety Report 12407714 (Version 7)
Quarter: 2017Q2

REPORT INFORMATION
  Report Type: Report from Study
  Country: JP (occurrence: JP)
  Receive Date: 20160526
  Receipt Date: 20170503
  Transmission Date: 20170830
  Serious: Yes (Hospitalization, Other)
  Sender: FDA-Public Use
  Company Number: PHHY2014JP141206

PATIENT
  Age: 16 Year
  Sex: Male
  Weight: 42 kg

DRUGS (55)
  1. CERTICAN [Suspect]
     Active Substance: EVEROLIMUS
     Dosage: 1.5 MG, UNK
     Route: 048
     Dates: start: 20110908, end: 20111011
  2. CERTICAN [Suspect]
     Active Substance: EVEROLIMUS
     Dosage: 2 MG, UNK
     Route: 048
     Dates: start: 20120105, end: 20120130
  3. PROGRAF [Suspect]
     Active Substance: TACROLIMUS\TACROLIMUS ANHYDROUS
     Dosage: 8 MG, UNK
     Route: 048
     Dates: start: 20111017, end: 20111021
  4. PREDONINE [Suspect]
     Active Substance: PREDNISOLONE
     Indication: HEART TRANSPLANT
     Dosage: 7.5 MG, QD
     Route: 048
     Dates: start: 20101209, end: 20101219
  5. PREDONINE [Suspect]
     Active Substance: PREDNISOLONE
     Dosage: 5 MG, QD
     Route: 048
     Dates: start: 20101220, end: 20160316
  6. BACTRAMIN [Suspect]
     Active Substance: SULFAMETHOXAZOLE\TRIMETHOPRIM
     Indication: PROPHYLAXIS
     Dosage: 1000 MG, QOD
     Route: 048
     Dates: start: 20101208, end: 20110124
  7. CERTICAN [Suspect]
     Active Substance: EVEROLIMUS
     Indication: HEART TRANSPLANT
     Dosage: 2.25 MG, QD
     Route: 048
     Dates: start: 20101225, end: 20110110
  8. CERTICAN [Suspect]
     Active Substance: EVEROLIMUS
     Dosage: 3 MG, UNK
     Route: 048
     Dates: start: 20111012, end: 20111012
  9. CERTICAN [Suspect]
     Active Substance: EVEROLIMUS
     Dosage: 0.5 MG, UNK
     Route: 048
     Dates: start: 20120912, end: 20130117
  10. CERTICAN [Suspect]
     Active Substance: EVEROLIMUS
     Dosage: 0.5 MG, QD
     Route: 048
     Dates: start: 20130913, end: 20160818
  11. PROGRAF [Suspect]
     Active Substance: TACROLIMUS\TACROLIMUS ANHYDROUS
     Dosage: 3 MG, UNK
     Route: 048
     Dates: start: 20120106, end: 20120109
  12. PROGRAF [Suspect]
     Active Substance: TACROLIMUS\TACROLIMUS ANHYDROUS
     Dosage: 4 MG, QD
     Route: 048
     Dates: start: 20150206, end: 20150812
  13. MYCOPHENOLATE MOFETIL. [Concomitant]
     Active Substance: MYCOPHENOLATE MOFETIL
     Dosage: 500 MG, UNK
     Route: 048
     Dates: start: 20120922
  14. RENIVACE [Concomitant]
     Active Substance: ENALAPRIL
     Indication: PROPHYLAXIS
     Dosage: 10 MG, UNK
     Route: 048
     Dates: start: 20101104
  15. MICARDIS [Concomitant]
     Active Substance: TELMISARTAN
     Dosage: 40 MG, UNK
     Route: 048
     Dates: start: 20130503
  16. CERTICAN [Suspect]
     Active Substance: EVEROLIMUS
     Dosage: 3.5 MG, UNK
     Route: 048
     Dates: start: 20110204, end: 20110208
  17. PROGRAF [Suspect]
     Active Substance: TACROLIMUS\TACROLIMUS ANHYDROUS
     Dosage: 8 MG, UNK
     Route: 048
     Dates: start: 20110228, end: 20110304
  18. PROGRAF [Suspect]
     Active Substance: TACROLIMUS\TACROLIMUS ANHYDROUS
     Dosage: 10 MG, UNK
     Route: 048
     Dates: start: 20110910, end: 20111016
  19. PROGRAF [Suspect]
     Active Substance: TACROLIMUS\TACROLIMUS ANHYDROUS
     Dosage: 6 MG, UNK
     Route: 048
     Dates: start: 20120510, end: 20120801
  20. PROGRAF [Suspect]
     Active Substance: TACROLIMUS\TACROLIMUS ANHYDROUS
     Dosage: 5 MG, QD
     Route: 048
     Dates: start: 20130503, end: 20150205
  21. CERTICAN [Suspect]
     Active Substance: EVEROLIMUS
     Dosage: 5.5 MG, UNK
     Route: 048
     Dates: start: 20110111, end: 20110118
  22. CERTICAN [Suspect]
     Active Substance: EVEROLIMUS
     Dosage: 3.25 MG, UNK
     Route: 048
     Dates: end: 20120104
  23. PROGRAF [Suspect]
     Active Substance: TACROLIMUS\TACROLIMUS ANHYDROUS
     Dosage: 11 MG, UNK
     Route: 048
     Dates: start: 20110425, end: 20110909
  24. PROGRAF [Suspect]
     Active Substance: TACROLIMUS\TACROLIMUS ANHYDROUS
     Dosage: 7 MG, UNK
     Route: 048
     Dates: start: 20120802, end: 20130117
  25. PROGRAF [Suspect]
     Active Substance: TACROLIMUS\TACROLIMUS ANHYDROUS
     Dosage: 4 MG, QD
     Route: 048
     Dates: start: 20150924, end: 20170105
  26. MYCOPHENOLATE MOFETIL. [Concomitant]
     Active Substance: MYCOPHENOLATE MOFETIL
     Dosage: 500 MG, UNK
     Route: 048
     Dates: start: 20110222, end: 20111027
  27. MEVALOTIN [Concomitant]
     Active Substance: PRAVASTATIN SODIUM
     Indication: PROPHYLAXIS
     Dosage: 10 MG, UNK
     Route: 048
     Dates: start: 20100408
  28. NORVASC [Concomitant]
     Active Substance: AMLODIPINE BESYLATE
     Dosage: 10 MG, UNK
     Route: 048
     Dates: start: 20121122
  29. CERTICAN [Suspect]
     Active Substance: EVEROLIMUS
     Dosage: 1.0 MG, UNK
     Route: 048
     Dates: start: 20130118, end: 20130704
  30. CERTICAN [Suspect]
     Active Substance: EVEROLIMUS
     Dosage: 1 MG, QD
     Route: 048
     Dates: start: 20160819
  31. PROGRAF [Suspect]
     Active Substance: TACROLIMUS\TACROLIMUS ANHYDROUS
     Indication: HEART TRANSPLANT
     Dosage: 12 MG, UNK
     Route: 048
     Dates: start: 20101129, end: 20110130
  32. PROGRAF [Suspect]
     Active Substance: TACROLIMUS\TACROLIMUS ANHYDROUS
     Dosage: 14 MG, UNK
     Route: 048
     Dates: start: 20110131, end: 20110213
  33. PROGRAF [Suspect]
     Active Substance: TACROLIMUS\TACROLIMUS ANHYDROUS
     Dosage: 5 MG, UNK
     Route: 048
     Dates: start: 20120130, end: 20120405
  34. PROGRAF [Suspect]
     Active Substance: TACROLIMUS\TACROLIMUS ANHYDROUS
     Dosage: 5.5 MG, UNK
     Route: 048
     Dates: start: 20120406, end: 20120509
  35. PROGRAF [Suspect]
     Active Substance: TACROLIMUS\TACROLIMUS ANHYDROUS
     Dosage: 3 MG, QD
     Route: 048
     Dates: start: 20150813, end: 20150923
  36. PROGRAF [Suspect]
     Active Substance: TACROLIMUS\TACROLIMUS ANHYDROUS
     Dosage: 3.5 MG, QD
     Route: 048
     Dates: start: 20170106
  37. PREDONINE [Suspect]
     Active Substance: PREDNISOLONE
     Dosage: 2.5 MG, QD
     Route: 048
     Dates: start: 20160317
  38. MICARDIS [Concomitant]
     Active Substance: TELMISARTAN
     Indication: PROPHYLAXIS
     Dosage: 20 MG, UNK
     Route: 048
     Dates: start: 20130308, end: 20130502
  39. CERTICAN [Suspect]
     Active Substance: EVEROLIMUS
     Dosage: 1.5 MG, UNK
     Route: 048
     Dates: start: 20130705, end: 20130912
  40. PROGRAF [Suspect]
     Active Substance: TACROLIMUS\TACROLIMUS ANHYDROUS
     Dosage: 6.0 MG, UNK
     Route: 048
     Dates: start: 20130118, end: 20130502
  41. MYCOPHENOLATE MOFETIL. [Concomitant]
     Active Substance: MYCOPHENOLATE MOFETIL
     Indication: HEART TRANSPLANT
     Dosage: 500 MG, UNK
     Route: 048
     Dates: start: 20101217, end: 20110111
  42. MYCOPHENOLATE MOFETIL. [Concomitant]
     Active Substance: MYCOPHENOLATE MOFETIL
     Dosage: 500 MG, UNK
     Route: 048
     Dates: start: 20120130, end: 20120307
  43. NORVASC [Concomitant]
     Active Substance: AMLODIPINE BESYLATE
     Dosage: 7.5 MG, UNK
     Route: 048
     Dates: start: 20101118, end: 20121121
  44. CERTICAN [Suspect]
     Active Substance: EVEROLIMUS
     Dosage: 3.5 MG, UNK
     Route: 048
     Dates: start: 20110119, end: 20110125
  45. CERTICAN [Suspect]
     Active Substance: EVEROLIMUS
     Dosage: 2.25 MG, UNK
     Route: 048
     Dates: start: 20111013, end: 20111013
  46. CERTICAN [Suspect]
     Active Substance: EVEROLIMUS
     Dosage: 3.5 MG, UNK
     Route: 048
     Dates: start: 20111026, end: 20111123
  47. PROGRAF [Suspect]
     Active Substance: TACROLIMUS\TACROLIMUS ANHYDROUS
     Dosage: 13 MG, UNK
     Route: 048
     Dates: start: 20110214, end: 20110227
  48. PROGRAF [Suspect]
     Active Substance: TACROLIMUS\TACROLIMUS ANHYDROUS
     Dosage: 6 MG, UNK
     Route: 048
     Dates: start: 20111022, end: 20120105
  49. PROGRAF [Suspect]
     Active Substance: TACROLIMUS\TACROLIMUS ANHYDROUS
     Dosage: 3.5 MG, UNK
     Route: 048
     Dates: start: 20120110, end: 20120129
  50. MYCOPHENOLATE MOFETIL. [Concomitant]
     Active Substance: MYCOPHENOLATE MOFETIL
     Dosage: 1000 MG, UNK
     Route: 048
     Dates: start: 20120510, end: 20120921
  51. NORVASC [Concomitant]
     Active Substance: AMLODIPINE BESYLATE
     Indication: HYPERTENSION
     Dosage: 5 MG, UNK
     Route: 048
     Dates: start: 20101109, end: 20111017
  52. CERTICAN [Suspect]
     Active Substance: EVEROLIMUS
     Dosage: 2 MG, UNK
     Route: 048
     Dates: start: 20111014, end: 20111021
  53. CERTICAN [Suspect]
     Active Substance: EVEROLIMUS
     Dosage: 3 MG, UNK
     Route: 048
     Dates: start: 20111022, end: 20111025
  54. PROGRAF [Suspect]
     Active Substance: TACROLIMUS\TACROLIMUS ANHYDROUS
     Dosage: 10 MG, UNK
     Route: 048
     Dates: start: 20110305, end: 20110424
  55. MYCOPHENOLATE MOFETIL. [Concomitant]
     Active Substance: MYCOPHENOLATE MOFETIL
     Dosage: 750 MG, UNK
     Route: 048
     Dates: start: 20120308, end: 20120509

REACTIONS (8)
  - Polyuria [Unknown]
  - Weight decreased [Unknown]
  - Thirst [Unknown]
  - Diabetes mellitus [Not Recovered/Not Resolved]
  - Diabetic ketoacidosis [Recovered/Resolved]
  - Fatigue [Unknown]
  - Pancytopenia [Recovered/Resolved]
  - Polydipsia [Unknown]

NARRATIVE: CASE EVENT DATE: 20110120
